FAERS Safety Report 7593224-6 (Version None)
Quarter: 2011Q3

REPORT INFORMATION
  Report Type: 
  Country: None (occurrence: None)
  Receive Date: 20110706
  Receipt Date: 20110630
  Transmission Date: 20111222
  Serious: Yes (Other)
  Sender: FDA-Public Use
  Company Number: US-JNJFOC-20110312203

PATIENT
  Sex: Male
  Weight: 99.79 kg

DRUGS (12)
  1. ZOCOR [Concomitant]
     Indication: BLOOD CHOLESTEROL
     Route: 048
     Dates: start: 20060101
  2. ZOLOFT [Concomitant]
     Indication: DEPRESSION
     Route: 048
  3. BIOTIN [Concomitant]
     Route: 048
  4. CLARITIN [Concomitant]
     Route: 048
  5. FLOMAX [Concomitant]
     Indication: PROSTATIC DISORDER
     Route: 048
  6. STELARA [Suspect]
     Indication: PSORIASIS
     Route: 058
     Dates: start: 20110118
  7. STELARA [Suspect]
     Route: 058
     Dates: start: 20110309
  8. MULTI-VITAMINS [Concomitant]
     Indication: NUTRITIONAL SUPPORT
     Route: 048
  9. ZOLOFT [Concomitant]
     Indication: ANXIETY
     Route: 048
  10. UROXATRAL [Concomitant]
     Indication: PROSTATIC DISORDER
     Route: 048
     Dates: start: 20110201
  11. FINASTERIDE [Concomitant]
     Indication: PROSTATIC DISORDER
     Route: 048
     Dates: start: 20110201
  12. ASPIRIN [Concomitant]
     Indication: THROMBOSIS
     Route: 048

REACTIONS (1)
  - PROSTATE CANCER [None]
